FAERS Safety Report 10944793 (Version 1)
Quarter: 2015Q1

REPORT INFORMATION
  Report Type: Spontaneous
  Country: US (occurrence: US)
  Receive Date: 20150323
  Receipt Date: 20150323
  Transmission Date: 20150721
  Serious: No
  Sender: FDA-Public Use
  Company Number: US-BAYER-2015-026895

PATIENT
  Age: 70 Year
  Sex: Female
  Weight: 59 kg

DRUGS (2)
  1. MULTIVITAMIN [Concomitant]
     Active Substance: VITAMINS
  2. ALEVE PM [Suspect]
     Active Substance: DIPHENHYDRAMINE HYDROCHLORIDE\NAPROXEN SODIUM
     Indication: SLEEP DISORDER THERAPY
     Dosage: 2 DF, QD
     Route: 048
     Dates: start: 20150218

REACTIONS (2)
  - Medication error [Unknown]
  - Epistaxis [Recovered/Resolved]

NARRATIVE: CASE EVENT DATE: 201502
